FAERS Safety Report 9494354 (Version 1)
Quarter: 2013Q3

REPORT INFORMATION
  Report Type: Spontaneous
  Country: US (occurrence: US)
  Receive Date: 20130903
  Receipt Date: 20130903
  Transmission Date: 20140515
  Serious: No
  Sender: FDA-Public Use
  Company Number: US-009507513-1308USA014966

PATIENT
  Age: 68 Year
  Sex: Female

DRUGS (2)
  1. JANUMET [Suspect]
     Indication: TYPE 2 DIABETES MELLITUS
     Dosage: 50 MG/ 1000 MG, BID,
     Route: 048
     Dates: start: 20130823, end: 20130828
  2. JANUVIA [Suspect]
     Dosage: UNK
     Route: 048

REACTIONS (2)
  - Lip exfoliation [Recovering/Resolving]
  - Lip swelling [Recovering/Resolving]
